FAERS Safety Report 7306444-2 (Version None)
Quarter: 2011Q1

REPORT INFORMATION
  Report Type: 
  Country: None (occurrence: None)
  Receive Date: 20110210
  Receipt Date: 20110131
  Transmission Date: 20110831
  Serious: Yes (Other)
  Sender: FDA-Public Use
  Company Number: 2010JP007225

PATIENT
  Age: 85 Year
  Sex: Male

DRUGS (2)
  1. RIKAVARIN (TRANEXAMIC ACID) INJECTION [Concomitant]
  2. FUNGUARD (MICAFUNGIN) INJECTION [Suspect]
     Indication: FUNGAL INFECTION
     Dosage: 50 MG, /D, IV DRIP
     Route: 041
     Dates: start: 20101110, end: 20101117

REACTIONS (2)
  - HAEMATURIA [None]
  - UPPER GASTROINTESTINAL HAEMORRHAGE [None]
